FAERS Safety Report 6334100-6 (Version None)
Quarter: 2009Q3

REPORT INFORMATION
  Report Type: 
  Country: None (occurrence: None)
  Receive Date: 20090829
  Receipt Date: 20090727
  Transmission Date: 20100115
  Serious: No
  Sender: FDA-Public Use
  Company Number: US-ABBOTT-09P-163-0587644-00

PATIENT
  Sex: Male
  Weight: 95.34 kg

DRUGS (1)
  1. SIMCOR [Suspect]
     Indication: BLOOD CHOLESTEROL INCREASED
     Dosage: 1000/40MG = TOTAL DOSE   2, 500/20MG TABLETS
     Route: 048
     Dates: start: 20090201

REACTIONS (2)
  - BURNING SENSATION [None]
  - FLUSHING [None]
